FAERS Safety Report 25845083 (Version 4)
Quarter: 2025Q3

REPORT INFORMATION
  Report Type: Spontaneous
  Country: US (occurrence: US)
  Receive Date: 20250925
  Receipt Date: 20250925
  Transmission Date: 20251020
  Serious: No
  Sender: SIGMA TAU
  Company Number: US-LEADIANT BIOSCIENCES, INC.-2024LBI000450

PATIENT
  Age: 31 Year
  Sex: Female

DRUGS (3)
  1. ABELCET [Suspect]
     Active Substance: AMPHOTERICIN B\DIMYRISTOYLPHOSPHATIDYLCHOLINE, DL-\DIMYRISTOYLPHOSPHATIDYLGLYCEROL, DL-
     Indication: Blastomycosis
     Route: 065
  2. AZITHROMYCIN [Suspect]
     Active Substance: AZITHROMYCIN
     Indication: Pneumonia
     Route: 065
  3. CEFTRIAXONE [Suspect]
     Active Substance: CEFTRIAXONE
     Indication: Pneumonia
     Route: 065

REACTIONS (2)
  - Maternal exposure during pregnancy [Unknown]
  - Live birth [Unknown]
